FAERS Safety Report 17289361 (Version 1)
Quarter: 2020Q1

REPORT INFORMATION
  Report Type: Spontaneous
  Country: US (occurrence: US)
  Receive Date: 20200120
  Receipt Date: 20200120
  Transmission Date: 20200409
  Serious: Yes (Life-Threatening, Hospitalization)
  Sender: FDA-Public Use
  Company Number: US-MYLANLABS-2020M1005853

PATIENT
  Age: 12 Year
  Sex: Male

DRUGS (5)
  1. MAGNESIUM [Suspect]
     Active Substance: MAGNESIUM
     Indication: STATUS ASTHMATICUS
     Dosage: UNK
     Route: 065
  2. TERBUTALINE [Suspect]
     Active Substance: TERBUTALINE
     Indication: RESPIRATORY FAILURE
     Dosage: UNK
     Route: 065
  3. SALBUTAMOL [Suspect]
     Active Substance: ALBUTEROL
     Indication: STATUS ASTHMATICUS
     Dosage: RECEIVED CONTINUOUS NEBULISATION
     Route: 045
  4. IPRATROPIUM [Suspect]
     Active Substance: IPRATROPIUM
     Indication: STATUS ASTHMATICUS
     Dosage: UNK
     Route: 065
  5. ISOFLURANE. [Suspect]
     Active Substance: ISOFLURANE
     Indication: RESPIRATORY FAILURE
     Dosage: UNK
     Route: 065

REACTIONS (2)
  - Bronchospasm [Recovered/Resolved]
  - Drug ineffective [Unknown]
